FAERS Safety Report 7343527-5 (Version None)
Quarter: 2011Q1

REPORT INFORMATION
  Report Type: 
  Country: None (occurrence: None)
  Receive Date: 20110308
  Receipt Date: 20110308
  Transmission Date: 20110831
  Serious: Yes (Hospitalization)
  Sender: FDA-Public Use
  Company Number: None

PATIENT
  Age: 12 Year
  Sex: Female
  Weight: 53.978 kg

DRUGS (1)
  1. SOLODYN [Suspect]
     Indication: ACNE
     Dosage: ONCE A DAY
     Dates: start: 20090313, end: 20110125

REACTIONS (3)
  - PNEUMONIA [None]
  - ARTHRALGIA [None]
  - LUPUS-LIKE SYNDROME [None]
